FAERS Safety Report 14777875 (Version 1)
Quarter: 2018Q2

REPORT INFORMATION
  Report Type: Spontaneous
  Country: FR (occurrence: FR)
  Receive Date: 20180419
  Receipt Date: 20180419
  Transmission Date: 20180711
  Serious: Yes (Other)
  Sender: FDA-Public Use
  Company Number: FR-MERCK KGAA-2046040

PATIENT
  Age: 67 Year
  Sex: Female

DRUGS (3)
  1. NOVOTHYROX [Suspect]
     Active Substance: LEVOTHYROXINE SODIUM
     Indication: AUTOIMMUNE THYROIDITIS
     Dates: start: 201704
  2. KARDEGIC [Concomitant]
     Active Substance: ASPIRIN DL-LYSINE
  3. TAREG [Concomitant]
     Active Substance: VALSARTAN

REACTIONS (23)
  - Dyspnoea exertional [None]
  - Crying [None]
  - Glycosylated haemoglobin increased [None]
  - Back pain [None]
  - Asocial behaviour [None]
  - Irritability [None]
  - Sleep disorder [None]
  - Malaise [None]
  - Mood altered [None]
  - Disturbance in attention [None]
  - Hyperhidrosis [None]
  - Fatigue [Recovering/Resolving]
  - Visual impairment [None]
  - Alopecia [None]
  - Arthralgia [None]
  - Blood thyroid stimulating hormone increased [Recovered/Resolved]
  - Headache [None]
  - Pain in extremity [None]
  - Asthenia [None]
  - Arrhythmia [None]
  - Weight increased [None]
  - Impaired driving ability [None]
  - Muscle spasms [None]

NARRATIVE: CASE EVENT DATE: 2017
